FAERS Safety Report 9570523 (Version 1)
Quarter: 2013Q3

REPORT INFORMATION
  Report Type: Spontaneous
  Country: US (occurrence: US)
  Receive Date: 20130930
  Receipt Date: 20130930
  Transmission Date: 20140515
  Serious: No
  Sender: FDA-Public Use
  Company Number: US-AMGEN-USASP2013063588

PATIENT
  Age: 57 Year
  Sex: Female

DRUGS (14)
  1. ENBREL [Suspect]
     Indication: PRODUCT USED FOR UNKNOWN INDICATION
     Dosage: 50 MG, QWK
     Route: 058
  2. AMLODIPINE [Concomitant]
     Dosage: 5 MG, UNK
  3. TRAMADOL HCL [Concomitant]
     Dosage: 50 MG, UNK
  4. CLONAZEPAM [Concomitant]
     Dosage: 2 MG, UNK
  5. HYDROCORTISONE [Concomitant]
     Dosage: UNK, 2.5%
  6. FOLIC ACID [Concomitant]
     Dosage: UNK
  7. MULTIVITAMINS, PLAIN [Concomitant]
     Dosage: UNK
  8. LANTUS [Concomitant]
     Dosage: 100/ML
  9. METHOTREXATE [Concomitant]
     Dosage: 2.5 MG, UNK
  10. CLOBETASOL [Concomitant]
     Dosage: UNK, 0.05%
  11. METFORMIN [Concomitant]
     Dosage: 500 MG, UNK
  12. CITALOPRAM [Concomitant]
     Dosage: 10 MG, UNK
  13. LORAZEPAM [Concomitant]
     Dosage: 0.5 MG, UNK
  14. METOPROLOL [Concomitant]
     Dosage: 100 MG, UNK

REACTIONS (3)
  - Sensation of heaviness [Unknown]
  - Hyperhidrosis [Unknown]
  - Paraesthesia [Unknown]
